FAERS Safety Report 15472855 (Version 3)
Quarter: 2024Q1

REPORT INFORMATION
  Report Type: Spontaneous
  Country: DE (occurrence: DE)
  Receive Date: 20181008
  Receipt Date: 20240212
  Transmission Date: 20240410
  Serious: Yes (Hospitalization, Other)
  Sender: FDA-Public Use
  Company Number: DE-AUROBINDO-AUR-APL-2018-048707

PATIENT
  Age: 16 Year
  Sex: Male

DRUGS (12)
  1. AMIODARONE [Suspect]
     Active Substance: AMIODARONE
     Indication: Arrhythmia
     Dosage: 200 MILLIGRAM 5 DAYS/WEEK
     Route: 065
  2. AMIODARONE [Suspect]
     Active Substance: AMIODARONE
     Indication: Ventricular tachycardia
     Dosage: REDUCED DOSE ()
     Route: 065
  3. AMIODARONE [Suspect]
     Active Substance: AMIODARONE
     Indication: Myocarditis
     Dosage: 200 MILLIGRAM, 5 DAYS/WEEK, 2.7 MG/KG
     Route: 065
  4. METOPROLOL [Suspect]
     Active Substance: METOPROLOL
     Indication: Ventricular tachycardia
     Dosage: UNK
     Route: 065
  5. METOPROLOL [Suspect]
     Active Substance: METOPROLOL
     Dosage: ()
  6. PREDNISONE [Suspect]
     Active Substance: PREDNISONE
     Indication: Immunosuppression
     Dosage: 10 MILLIGRAM, DAILY
     Route: 065
  7. PREDNISONE [Suspect]
     Active Substance: PREDNISONE
     Indication: Ventricular tachycardia
     Dosage: 20 MILLIGRAM, DAILY
     Route: 065
  8. PREDNISONE [Suspect]
     Active Substance: PREDNISONE
     Indication: Myocarditis
     Dosage: 40 MILLIGRAM, DAILY FOR 1 WEEK
     Route: 065
  9. PREDNISONE [Suspect]
     Active Substance: PREDNISONE
     Indication: Hypothyroidism
     Dosage: 40 MILLIGRAM, DAILY STOPPED AFTER 9 MONTHS
     Route: 065
  10. RAMIPRIL [Concomitant]
     Active Substance: RAMIPRIL
     Indication: Myocarditis
     Dosage: UNK
     Route: 065
  11. SOTALOL [Concomitant]
     Active Substance: SOTALOL
     Indication: Myocarditis
     Dosage: UNK
     Route: 065
  12. SOTALOL [Concomitant]
     Active Substance: SOTALOL
     Dosage: ()

REACTIONS (7)
  - Hyperthyroidism [Recovered/Resolved]
  - Hypothyroidism [Recovering/Resolving]
  - Drug withdrawal syndrome [Unknown]
  - Hyperhidrosis [Unknown]
  - Sleep disorder [Unknown]
  - Weight decreased [Unknown]
  - Thyroiditis [Recovering/Resolving]
